FAERS Safety Report 6347440 (Version 2)
Quarter: 2021Q2

REPORT INFORMATION
  Report Type: Spontaneous
  Country: GB (occurrence: GB)
  Receive Date: 20070702
  Receipt Date: 20210601
  Transmission Date: 20210717
  Serious: Yes (Death, Other)
  Sender: FDA-Public Use
  Company Number: GB-ROCHE-101060

PATIENT
  Age: 19 Year
  Sex: Male

DRUGS (2)
  1. ROACCUTANE [Suspect]
     Active Substance: ISOTRETINOIN
     Route: 048
  2. ROACCUTANE [Suspect]
     Active Substance: ISOTRETINOIN
     Indication: ACNE
     Dosage: DOSAGE REGIMEN REPORTED AS 1 DAYS.
     Route: 048
     Dates: start: 19971209

REACTIONS (2)
  - Depressive symptom [Not Recovered/Not Resolved]
  - Completed suicide [Fatal]

NARRATIVE: CASE EVENT DATE: 199802
